FAERS Safety Report 23722635 (Version 3)
Quarter: 2024Q2

REPORT INFORMATION
  Report Type: Spontaneous
  Country: US (occurrence: US)
  Receive Date: 20240409
  Receipt Date: 20240429
  Transmission Date: 20240716
  Serious: No
  Sender: FDA-Public Use
  Company Number: US-GLAXOSMITHKLINE-US2024AMR042132

PATIENT
  Age: 84 Year
  Sex: Female

DRUGS (1)
  1. ZEJULA [Suspect]
     Active Substance: NIRAPARIB
     Indication: Ovarian cancer
     Dosage: 200 MG, QD
     Route: 048
     Dates: start: 20240329, end: 20240415

REACTIONS (9)
  - Fatigue [Not Recovered/Not Resolved]
  - Constipation [Not Recovered/Not Resolved]
  - Malaise [Unknown]
  - Insomnia [Not Recovered/Not Resolved]
  - Decreased appetite [Not Recovered/Not Resolved]
  - Dizziness [Not Recovered/Not Resolved]
  - Anxiety [Not Recovered/Not Resolved]
  - Platelet count decreased [Recovered/Resolved]
  - Asthenia [Not Recovered/Not Resolved]

NARRATIVE: CASE EVENT DATE: 20240415
